FAERS Safety Report 6603005-5 (Version None)
Quarter: 2010Q1

REPORT INFORMATION
  Report Type: 
  Country: None (occurrence: None)
  Receive Date: 20100226
  Receipt Date: 20100222
  Transmission Date: 20100710
  Serious: Yes (Other)
  Sender: FDA-Public Use
  Company Number: CA-BAYER-201014824NA

PATIENT
  Sex: Female

DRUGS (2)
  1. YASMIN [Suspect]
     Indication: DRUG USE FOR UNKNOWN INDICATION
     Route: 048
     Dates: start: 20100208, end: 20100218
  2. BLOOD THINNER [Concomitant]
     Dosage: SMALL DOSE

REACTIONS (3)
  - DYSPNOEA [None]
  - MIGRAINE [None]
  - MUSCLE SPASMS [None]
